FAERS Safety Report 24984637 (Version 1)
Quarter: 2025Q1

REPORT INFORMATION
  Report Type: Spontaneous
  Country: US (occurrence: US)
  Receive Date: 20250219
  Receipt Date: 20250219
  Transmission Date: 20250409
  Serious: No
  Sender: CIPLA
  Company Number: US-CIPLA LTD.-2024US02509

PATIENT

DRUGS (15)
  1. ALBUTEROL\IPRATROPIUM [Suspect]
     Active Substance: ALBUTEROL\IPRATROPIUM
     Indication: Product used for unknown indication
     Dosage: UNK, BID (0.5-3MG/3ML)
     Route: 065
  2. ALBUTEROL\IPRATROPIUM [Suspect]
     Active Substance: ALBUTEROL\IPRATROPIUM
     Dosage: UNK, BID (0.5-3MG/3ML) (BOX 1- PRODUCT 1)
     Route: 065
     Dates: start: 2024
  3. ALBUTEROL\IPRATROPIUM [Suspect]
     Active Substance: ALBUTEROL\IPRATROPIUM
     Dosage: UNK, BID (0.5-3MG/3ML) (BOX 1- PRODUCT 2)
     Route: 065
     Dates: start: 2024
  4. ALBUTEROL\IPRATROPIUM [Suspect]
     Active Substance: ALBUTEROL\IPRATROPIUM
     Dosage: UNK, BID (0.5-3MG/3ML) (BOX 1- PRODUCT 3)
     Route: 065
     Dates: start: 2024
  5. ALBUTEROL\IPRATROPIUM [Suspect]
     Active Substance: ALBUTEROL\IPRATROPIUM
     Dosage: UNK, BID (0.5-3MG/3ML) (BOX 1- PRODUCT 4)
     Route: 065
     Dates: start: 2024
  6. ALBUTEROL\IPRATROPIUM [Suspect]
     Active Substance: ALBUTEROL\IPRATROPIUM
     Dosage: UNK, BID (0.5-3MG/3ML) (BOX 1- PRODUCT 5)
     Route: 065
     Dates: start: 2024
  7. ALBUTEROL\IPRATROPIUM [Suspect]
     Active Substance: ALBUTEROL\IPRATROPIUM
     Dosage: UNK, BID (0.5-3MG/3ML) (BOX 1- PRODUCT 6)
     Route: 065
     Dates: start: 2024
  8. ALBUTEROL\IPRATROPIUM [Suspect]
     Active Substance: ALBUTEROL\IPRATROPIUM
     Dosage: UNK, BID (0.5-3MG/3ML) (BOX 1- PRODUCT 7)
     Route: 065
     Dates: start: 2024
  9. ALBUTEROL\IPRATROPIUM [Suspect]
     Active Substance: ALBUTEROL\IPRATROPIUM
     Dosage: UNK, BID (0.5-3MG/3ML) (BOX 2, PRODUCT 8)
     Route: 065
     Dates: start: 20240228
  10. ALBUTEROL\IPRATROPIUM [Suspect]
     Active Substance: ALBUTEROL\IPRATROPIUM
     Dosage: UNK, BID (0.5-3MG/3ML) (BOX 2, PRODUCT 9)
     Route: 065
     Dates: start: 20240228
  11. ALBUTEROL\IPRATROPIUM [Suspect]
     Active Substance: ALBUTEROL\IPRATROPIUM
     Dosage: UNK, BID (0.5-3MG/3ML) (BOX 2, PRODUCT 10)
     Route: 065
     Dates: start: 20240228
  12. ALBUTEROL\IPRATROPIUM [Suspect]
     Active Substance: ALBUTEROL\IPRATROPIUM
     Dosage: UNK, BID (0.5-3MG/3ML) (BOX 2, PRODUCT 11)
     Route: 065
     Dates: start: 20240228
  13. ALBUTEROL\IPRATROPIUM [Suspect]
     Active Substance: ALBUTEROL\IPRATROPIUM
     Dosage: UNK, BID (0.5-3MG/3ML) (BOX 2, PRODUCT 12)
     Route: 065
     Dates: start: 20240228
  14. ALBUTEROL\IPRATROPIUM [Suspect]
     Active Substance: ALBUTEROL\IPRATROPIUM
     Dosage: UNK, BID (0.5-3MG/3ML) (BOX 2, PRODUCT 13)
     Route: 065
     Dates: start: 20240228
  15. ALBUTEROL\IPRATROPIUM [Suspect]
     Active Substance: ALBUTEROL\IPRATROPIUM
     Dosage: UNK, BID (0.5-3MG/3ML) (BOX 2, PRODUCT 14)
     Route: 065
     Dates: start: 20240228

REACTIONS (5)
  - Product storage error [Unknown]
  - Therapeutic product ineffective [Unknown]
  - Product dose omission issue [Unknown]
  - Product quality issue [Unknown]
  - Product physical consistency issue [Unknown]

NARRATIVE: CASE EVENT DATE: 20240101
